FAERS Safety Report 9977656 (Version 2)
Quarter: 2014Q1

REPORT INFORMATION
  Report Type: Report from Study
  Country: US (occurrence: US)
  Receive Date: 20140306
  Receipt Date: 20140306
  Transmission Date: 20141002
  Serious: No
  Sender: FDA-Public Use
  Company Number: US-ABBVIE-13P-163-1158599-00

PATIENT
  Sex: Female
  Weight: 81.72 kg

DRUGS (7)
  1. HUMIRA [Suspect]
     Indication: RHEUMATOID ARTHRITIS
     Route: 058
     Dates: start: 20120517, end: 20130107
  2. METHOTREXATE [Concomitant]
     Indication: RHEUMATOID ARTHRITIS
  3. HYDROCHLOROTHIAZIDE [Concomitant]
     Indication: HYPERTENSION
  4. PAXIL [Concomitant]
     Indication: ANXIETY
  5. FOLIC ACID [Concomitant]
     Indication: PRODUCT USED FOR UNKNOWN INDICATION
  6. PRILOSEC [Concomitant]
     Indication: GASTRIC DISORDER
  7. SULINDAC [Concomitant]
     Indication: ANTIINFLAMMATORY THERAPY

REACTIONS (8)
  - Granuloma skin [Recovered/Resolved]
  - Granuloma skin [Recovered/Resolved]
  - Pyogenic granuloma [Recovered/Resolved]
  - Rheumatoid arthritis [Not Recovered/Not Resolved]
  - Joint swelling [Not Recovered/Not Resolved]
  - Joint stiffness [Not Recovered/Not Resolved]
  - Arthralgia [Not Recovered/Not Resolved]
  - Nodule [Not Recovered/Not Resolved]
